FAERS Safety Report 6561544-X (Version None)
Quarter: 2010Q1

REPORT INFORMATION
  Report Type: 
  Country: None (occurrence: None)
  Receive Date: 20100130
  Receipt Date: 20091019
  Transmission Date: 20100710
  Serious: No
  Sender: FDA-Public Use
  Company Number: US-ABBOTT-09P-163-0604087-00

PATIENT
  Sex: Female

DRUGS (7)
  1. HUMIRA [Suspect]
     Indication: PSORIATIC ARTHROPATHY
     Dates: start: 20091006
  2. METFORMIN HCL [Concomitant]
     Indication: DIABETES MELLITUS
  3. EXFORGE [Concomitant]
     Indication: HYPERTENSION
     Dosage: UNKNOWN
  4. ADVAIR DISKUS (FLUTICASONE PROPIONATE; SALMETEROL XINAFOATE) [Concomitant]
     Indication: CHRONIC OBSTRUCTIVE PULMONARY DISEASE
  5. LASIX [Concomitant]
     Indication: HYPERTENSION
  6. NEXIUM [Concomitant]
     Indication: DRUG USE FOR UNKNOWN INDICATION
  7. SINGULAIR [Concomitant]
     Indication: HYPERSENSITIVITY

REACTIONS (3)
  - HEADACHE [None]
  - INCREASED UPPER AIRWAY SECRETION [None]
  - SINUS CONGESTION [None]
